FAERS Safety Report 5205228-9 (Version None)
Quarter: 2007Q1

REPORT INFORMATION
  Report Type: 
  Country: None (occurrence: None)
  Receive Date: 20070110
  Receipt Date: 20061229
  Transmission Date: 20070707
  Serious: Yes (Hospitalization, Other)
  Sender: FDA-Public Use
  Company Number: US-PFIZER INC-2007000445

PATIENT
  Sex: Female
  Weight: 73.5 kg

DRUGS (1)
  1. CHANTIX [Suspect]
     Indication: SMOKING CESSATION THERAPY
     Route: 048
     Dates: start: 20061201, end: 20061222

REACTIONS (3)
  - CHEST PAIN [None]
  - FLANK PAIN [None]
  - HEPATIC ENZYME INCREASED [None]
